FAERS Safety Report 5641193-8 (Version None)
Quarter: 2008Q1

REPORT INFORMATION
  Report Type: 
  Country: None (occurrence: None)
  Receive Date: 20080227
  Receipt Date: 20070308
  Transmission Date: 20080703
  Serious: No
  Sender: FDA-Public Use
  Company Number: A0642285A

PATIENT
  Age: 64 Year
  Sex: Male

DRUGS (4)
  1. NICORETTE (MINT) [Suspect]
     Dates: start: 20070303, end: 20070305
  2. BLOOD PRESSURE MEDICATION [Concomitant]
  3. ANTI-CHOLESTEROL MEDICATION [Concomitant]
  4. WATER PILL [Concomitant]

REACTIONS (2)
  - MALAISE [None]
  - STOMACH DISCOMFORT [None]
